FAERS Safety Report 13711193 (Version 2)
Quarter: 2017Q3

REPORT INFORMATION
  Report Type: Spontaneous
  Country: US (occurrence: US)
  Receive Date: 20170703
  Receipt Date: 20170727
  Transmission Date: 20171127
  Serious: No
  Sender: FDA-Public Use
  Company Number: US-BAYER-2017-126923

PATIENT
  Age: 93 Year
  Sex: Female
  Weight: 68.98 kg

DRUGS (3)
  1. MIRALAX [Suspect]
     Active Substance: POLYETHYLENE GLYCOL 3350
     Indication: GASTROINTESTINAL DISORDER
     Dosage: UNK
  2. VITAMINS NOS [Concomitant]
     Active Substance: VITAMINS
     Dosage: UNK
  3. MIRALAX [Suspect]
     Active Substance: POLYETHYLENE GLYCOL 3350
     Indication: GASTROINTESTINAL DISORDER
     Dosage: 1 DF, UNK
     Route: 048
     Dates: end: 20170630

REACTIONS (2)
  - Inappropriate schedule of drug administration [Unknown]
  - Expired product administered [Unknown]

NARRATIVE: CASE EVENT DATE: 20170629
